FAERS Safety Report 12455077 (Version 1)
Quarter: 2016Q2

REPORT INFORMATION
  Report Type: Spontaneous
  Country: US (occurrence: None)
  Receive Date: 20160609
  Receipt Date: 20160609
  Transmission Date: 20160815
  Serious: Yes (Death, Life-Threatening, Hospitalization)
  Sender: FDA-Public Use
  Company Number: None

PATIENT
  Age: 74 Year
  Sex: Female

DRUGS (1)
  1. AMIODARONE, 200 MG [Suspect]
     Active Substance: AMIODARONE
     Indication: ATRIAL FIBRILLATION
     Route: 048
     Dates: start: 20151205, end: 20160524

REACTIONS (4)
  - Multiple organ dysfunction syndrome [None]
  - Pulmonary toxicity [None]
  - Toxicity to various agents [None]
  - Respiratory failure [None]

NARRATIVE: CASE EVENT DATE: 20160527
